FAERS Safety Report 23047240 (Version 3)
Quarter: 2023Q4

REPORT INFORMATION
  Report Type: Spontaneous
  Country: DE (occurrence: DE)
  Receive Date: 20231009
  Receipt Date: 20231213
  Transmission Date: 20240109
  Serious: Yes (Hospitalization, Other)
  Sender: FDA-Public Use
  Company Number: DE-LUNDBECK-DKLU3067671

PATIENT
  Age: 26 Year
  Sex: Male

DRUGS (4)
  1. CIPRALEX [Suspect]
     Active Substance: ESCITALOPRAM OXALATE
     Indication: Anxiety disorder
     Route: 065
     Dates: start: 2017
  2. CIPRALEX [Suspect]
     Active Substance: ESCITALOPRAM OXALATE
     Indication: Anxiety disorder
     Route: 065
  3. CIPRALEX [Suspect]
     Active Substance: ESCITALOPRAM OXALATE
     Indication: Anxiety disorder
     Dosage: INCREASED 1MG
     Route: 065
  4. MIRTAZAPINE [Concomitant]
     Active Substance: MIRTAZAPINE
     Indication: Product used for unknown indication
     Dosage: 3.75 MG IN THE EVENING
     Route: 065

REACTIONS (13)
  - Suicidal ideation [Recovering/Resolving]
  - Headache [Recovering/Resolving]
  - Dyspepsia [Recovering/Resolving]
  - Palpitations [Recovering/Resolving]
  - Panic reaction [Recovering/Resolving]
  - Constipation [Recovering/Resolving]
  - Product packaging confusion [Unknown]
  - Anxiety [Recovering/Resolving]
  - Feeling abnormal [Recovering/Resolving]
  - Restlessness [Recovering/Resolving]
  - Treatment noncompliance [Unknown]
  - Eructation [Recovering/Resolving]
  - Wrong technique in product usage process [Unknown]
